FAERS Safety Report 18426706 (Version 1)
Quarter: 2020Q4

REPORT INFORMATION
  Report Type: Spontaneous
  Country: US (occurrence: US)
  Receive Date: 20201026
  Receipt Date: 20201026
  Transmission Date: 20210114
  Serious: No
  Sender: FDA-Public Use
  Company Number: None

PATIENT
  Age: 55 Year
  Sex: Female
  Weight: 72 kg

DRUGS (17)
  1. KANJINTI [Suspect]
     Active Substance: TRASTUZUMAB-ANNS
     Indication: BREAST CANCER
     Dosage: ?          OTHER FREQUENCY:Q21 DAYS;?
     Route: 042
     Dates: start: 20200828, end: 20201009
  2. DEXAMETHASONE. [Concomitant]
     Active Substance: DEXAMETHASONE
     Dates: start: 20200828
  3. ADDERALL [Concomitant]
     Active Substance: AMPHETAMINE ASPARTATE\AMPHETAMINE SULFATE\DEXTROAMPHETAMINE SACCHARATE\DEXTROAMPHETAMINE SULFATE
  4. CARBOPLATIN. [Concomitant]
     Active Substance: CARBOPLATIN
     Dates: start: 20200828
  5. GABAPENTIN. [Concomitant]
     Active Substance: GABAPENTIN
  6. DIPHENHYDRAMINE IV [Concomitant]
     Dates: start: 20200828
  7. PERTUZUMAB. [Concomitant]
     Active Substance: PERTUZUMAB
     Dates: start: 20200828
  8. DOCETAXEL. [Concomitant]
     Active Substance: DOCETAXEL
     Dates: start: 20200828
  9. HYDROCORTIZONE IV [Concomitant]
     Dates: start: 20200828
  10. ONDANSETRON [Concomitant]
     Active Substance: ONDANSETRON
  11. LEVOTHYROXINE. [Concomitant]
     Active Substance: LEVOTHYROXINE
  12. EPINEPHRINE. [Concomitant]
     Active Substance: EPINEPHRINE
     Dates: start: 20200828
  13. FAMOTIDINE IV [Concomitant]
     Dates: start: 20200828
  14. METHYLPREDNISOLONE IV [Concomitant]
     Active Substance: METHYLPREDNISOLONE
     Dates: start: 20200828
  15. PALONOSETRON. [Concomitant]
     Active Substance: PALONOSETRON HYDROCHLORIDE
     Dates: start: 20200828
  16. FOSAPREPITANT [Concomitant]
     Active Substance: FOSAPREPITANT
     Dates: start: 20200828
  17. VALACYCLOVIR [Concomitant]
     Active Substance: VALACYCLOVIR HYDROCHLORIDE

REACTIONS (3)
  - Product substitution issue [None]
  - Rash [None]
  - Rash vesicular [None]

NARRATIVE: CASE EVENT DATE: 20201021
